FAERS Safety Report 9453071 (Version 1)
Quarter: 2013Q3

REPORT INFORMATION
  Report Type: Spontaneous
  Country: US (occurrence: US)
  Receive Date: 20130812
  Receipt Date: 20130812
  Transmission Date: 20140515
  Serious: Yes (Hospitalization)
  Sender: FDA-Public Use
  Company Number: US-BAXTER-2013BAX031375

PATIENT
  Sex: Male

DRUGS (1)
  1. DIANEAL LOW CALCIUM [Suspect]
     Indication: PERITONEAL DIALYSIS
     Route: 033

REACTIONS (4)
  - Lower respiratory tract infection [Recovering/Resolving]
  - Feeling abnormal [Recovering/Resolving]
  - Gastric disorder [Recovering/Resolving]
  - Depressed level of consciousness [Recovering/Resolving]
